FAERS Safety Report 16789854 (Version 1)
Quarter: 2019Q3

REPORT INFORMATION
  Report Type: Report from Study
  Country: US (occurrence: US)
  Receive Date: 20190910
  Receipt Date: 20190910
  Transmission Date: 20191005
  Serious: Yes (Death, Other)
  Sender: FDA-Public Use
  Company Number: US-MYLANLABS-2019M1083462

PATIENT

DRUGS (3)
  1. POLYVINYL ALCOHOL [Concomitant]
     Active Substance: POLYVINYL ALCOHOL
     Indication: PRODUCT USED FOR UNKNOWN INDICATION
     Dosage: DEB-TACE USING UP TO TWO 2ML VIALS OF SPHERICAL POLYVINYL ALCOHOL MICROSPHERES IMPREGNATED WITH A...
     Route: 065
  2. OMNIPAQUE [Concomitant]
     Active Substance: IOHEXOL
     Indication: PRODUCT USED FOR UNKNOWN INDICATION
     Dosage: PRIOR TO ADMINISTRATION, EACH 2ML VIAL OF DRUG-ELUTING BEADS WAS RE-SUSPENDED IN 10ML OF IOHEXOL ...
     Route: 065
  3. DOXORUBICIN [Suspect]
     Active Substance: DOXORUBICIN
     Indication: HEPATOCELLULAR CARCINOMA
     Dosage: DEB-TACE USING UP TO TWO 2ML VIALS OF SPHERICAL POLYVINYL ALCOHOL MICROSPHERES IMPREGNATED WITH A...
     Route: 065

REACTIONS (1)
  - Hepatic failure [Fatal]
